FAERS Safety Report 6921995-8 (Version None)
Quarter: 2010Q3

REPORT INFORMATION
  Report Type: 
  Country: None (occurrence: None)
  Receive Date: 20100812
  Receipt Date: 20100802
  Transmission Date: 20110219
  Serious: Yes (Hospitalization)
  Sender: FDA-Public Use
  Company Number: PHHY2010IT41145

PATIENT
  Sex: Female

DRUGS (7)
  1. TEGRETOL [Suspect]
     Indication: PARTIAL SEIZURES
     Dosage: 1000 MG, DAILY
     Route: 048
     Dates: start: 19990427, end: 20100427
  2. TOPAMAX [Concomitant]
     Dosage: 100 MG, UNK
     Route: 048
  3. ZOLOFT [Concomitant]
     Dosage: 100 MG, UNK
     Route: 048
  4. LOBIVON [Concomitant]
     Dosage: 5 MG, UNK
     Route: 048
  5. TRIATEC [Concomitant]
     Dosage: UNK
  6. OLMESARTAN MEDOXOMIL [Concomitant]
     Dosage: 10 MG, UNK
     Route: 048
  7. TORVAST [Concomitant]
     Dosage: 5 MG, UNK
     Route: 048

REACTIONS (3)
  - BLOOD SODIUM DECREASED [None]
  - CONFUSIONAL STATE [None]
  - MENTAL DISORDER [None]
